FAERS Safety Report 7423513-7 (Version None)
Quarter: 2011Q2

REPORT INFORMATION
  Report Type: 
  Country: None (occurrence: None)
  Receive Date: 20110419
  Receipt Date: 20110411
  Transmission Date: 20111010
  Serious: Yes (Hospitalization, Other)
  Sender: FDA-Public Use
  Company Number: PHHY2011US30766

PATIENT
  Age: 19 Year
  Sex: Male

DRUGS (1)
  1. TOBI [Suspect]
     Dosage: 300 MG, BID 28 ON AND 28 DAYS OFF
     Dates: start: 20101209, end: 20110202

REACTIONS (1)
  - LIVER DISORDER [None]
